FAERS Safety Report 5894171-8 (Version None)
Quarter: 2008Q3

REPORT INFORMATION
  Report Type: 
  Country: None (occurrence: None)
  Receive Date: 20080923
  Receipt Date: 20080215
  Transmission Date: 20090109
  Serious: No
  Sender: FDA-Public Use
  Company Number: US-ASTRAZENECA-2008UW03219

PATIENT
  Age: 9 Year
  Sex: Male
  Weight: 28.1 kg

DRUGS (1)
  1. SEROQUEL [Suspect]
     Route: 048

REACTIONS (4)
  - DYSKINESIA [None]
  - EXCESSIVE EYE BLINKING [None]
  - EYE DISORDER [None]
  - SOMNOLENCE [None]
